FAERS Safety Report 16054135 (Version 2)
Quarter: 2019Q2

REPORT INFORMATION
  Report Type: Report from Study
  Country: US (occurrence: US)
  Receive Date: 20190308
  Receipt Date: 20190410
  Transmission Date: 20190711
  Serious: Yes (Hospitalization, Other)
  Sender: FDA-Public Use
  Company Number: US-SHIRE-US201906296

PATIENT
  Age: 58 Year
  Sex: Female

DRUGS (2)
  1. TPN [Concomitant]
     Active Substance: AMINO ACIDS\DEXTROSE\ELECTROLYTES NOS\SOYBEAN OIL
     Indication: PRODUCT USED FOR UNKNOWN INDICATION
  2. GATTEX [Suspect]
     Active Substance: TEDUGLUTIDE\WATER
     Indication: MALABSORPTION
     Dosage: 0.29 MILLILITER, 1X/DAY:QD
     Route: 058
     Dates: start: 20190217

REACTIONS (13)
  - Influenza [Not Recovered/Not Resolved]
  - Abnormal faeces [Not Recovered/Not Resolved]
  - Renal disorder [Not Recovered/Not Resolved]
  - Off label use [Unknown]
  - Staphylococcal infection [Unknown]
  - Intestinal obstruction [Unknown]
  - Pancreatitis [Unknown]
  - Anorectal disorder [Not Recovered/Not Resolved]
  - Injection site bruising [Not Recovered/Not Resolved]
  - Urine output increased [Not Recovered/Not Resolved]
  - Dysuria [Not Recovered/Not Resolved]
  - Abdominal pain [Unknown]
  - Dysuria [Not Recovered/Not Resolved]

NARRATIVE: CASE EVENT DATE: 20190217
